FAERS Safety Report 4626437-3 (Version None)
Quarter: 2005Q2

REPORT INFORMATION
  Report Type: 
  Country: None (occurrence: None)
  Receive Date: 20050404
  Receipt Date: 20050325
  Transmission Date: 20051028
  Serious: Yes (Hospitalization)
  Sender: FDA-Public Use
  Company Number: FR-ABBOTT-05P-056-0295504-00

PATIENT
  Age: 50 Year
  Sex: Female

DRUGS (5)
  1. NAXY [Suspect]
     Indication: INFLUENZA
     Route: 048
     Dates: start: 20050208, end: 20050208
  2. PARACETAMOL [Suspect]
     Indication: CHEST PAIN
     Route: 048
     Dates: start: 20050208, end: 20050208
  3. FUSAFUNGINE [Suspect]
     Indication: INFLUENZA
     Route: 055
     Dates: start: 20050208, end: 20050208
  4. BRONKIREX [Suspect]
     Indication: INFLUENZA
     Route: 048
     Dates: start: 20050208, end: 20050208
  5. OSELTAMIVIR [Concomitant]
     Indication: DRUG USE FOR UNKNOWN INDICATION
     Dates: start: 20050208, end: 20050208

REACTIONS (7)
  - CARDIO-RESPIRATORY ARREST [None]
  - ELECTROENCEPHALOGRAM ABNORMAL [None]
  - EXTRAPYRAMIDAL DISORDER [None]
  - LACTIC ACIDOSIS [None]
  - NERVOUS SYSTEM DISORDER [None]
  - NEUROLOGICAL SYMPTOM [None]
  - TORSADE DE POINTES [None]
